FAERS Safety Report 4284800-7 (Version None)
Quarter: 2004Q1

REPORT INFORMATION
  Report Type: 
  Country: None (occurrence: None)
  Receive Date: 20040204
  Receipt Date: 20040127
  Transmission Date: 20041129
  Serious: Yes (Hospitalization)
  Sender: FDA-Public Use
  Company Number: 200410654US

PATIENT
  Sex: Female
  Weight: 70 kg

DRUGS (2)
  1. TAXOTERE [Suspect]
     Indication: BREAST CANCER METASTATIC
     Route: 042
     Dates: start: 20040106, end: 20040120
  2. OSI-774 [Concomitant]
     Indication: BREAST CANCER METASTATIC
     Route: 048
     Dates: start: 20040106, end: 20040117

REACTIONS (7)
  - ANAEMIA [None]
  - ANOREXIA [None]
  - DIARRHOEA [None]
  - HYPOCALCAEMIA [None]
  - HYPOKALAEMIA [None]
  - LEUKOPENIA [None]
  - NEUTROPENIA [None]
